FAERS Safety Report 14453308 (Version 1)
Quarter: 2018Q1

REPORT INFORMATION
  Report Type: Spontaneous
  Country: US (occurrence: US)
  Receive Date: 20180129
  Receipt Date: 20180129
  Transmission Date: 20180509
  Serious: No
  Sender: FDA-Public Use
  Company Number: US-PERRIGO-17US003176

PATIENT
  Age: 86 Year
  Sex: Female

DRUGS (1)
  1. HALOBETASOL PROPIONATE. [Suspect]
     Active Substance: HALOBETASOL PROPIONATE
     Indication: PSORIASIS
     Dosage: UNKNOWN, UNKNOWN
     Route: 061
     Dates: start: 201704, end: 201704

REACTIONS (2)
  - Rash [Unknown]
  - Expired product administered [Unknown]

NARRATIVE: CASE EVENT DATE: 201704
